FAERS Safety Report 4966714-X (Version None)
Quarter: 2006Q1

REPORT INFORMATION
  Report Type: 
  Country: None (occurrence: None)
  Receive Date: 20060201
  Receipt Date: 20051206
  Transmission Date: 20060701
  Serious: No
  Sender: FDA-Public Use
  Company Number: 2005PV005532

PATIENT
  Age: 79 Year
  Sex: Male
  Weight: 75.7507 kg

DRUGS (3)
  1. BYETTA [Suspect]
     Indication: DIABETES MELLITUS NON-INSULIN-DEPENDENT
     Dosage: 5 MCG;BID;SC
     Route: 058
     Dates: start: 20051113
  2. GLIPIZIDE [Concomitant]
  3. ASPIRIN [Concomitant]

REACTIONS (1)
  - INJECTION SITE URTICARIA [None]
